FAERS Safety Report 14854259 (Version 1)
Quarter: 2018Q2

REPORT INFORMATION
  Report Type: Spontaneous
  Country: IL (occurrence: IL)
  Receive Date: 20180507
  Receipt Date: 20180507
  Transmission Date: 20180711
  Serious: Yes (Hospitalization)
  Sender: FDA-Public Use
  Company Number: IL-SA-2018SA128849

PATIENT
  Age: 37 Year
  Sex: Male

DRUGS (3)
  1. TOUJEO [Suspect]
     Active Substance: INSULIN GLARGINE
     Route: 058
     Dates: end: 20180430
  2. SOLOSTAR [Suspect]
     Active Substance: DEVICE
     Route: 058
     Dates: end: 20180430
  3. APIDRA [Suspect]
     Active Substance: INSULIN GLULISINE
     Route: 058
     Dates: start: 20180410, end: 20180430

REACTIONS (1)
  - Pancreatitis [Unknown]
